FAERS Safety Report 4530331-6 (Version None)
Quarter: 2004Q4

REPORT INFORMATION
  Report Type: 
  Country: None (occurrence: None)
  Receive Date: 20041217
  Receipt Date: 20041210
  Transmission Date: 20050328
  Serious: Yes (Hospitalization, Other)
  Sender: FDA-Public Use
  Company Number: CH-BRISTOL-MYERS SQUIBB COMPANY-12792420

PATIENT
  Age: 6 Decade
  Sex: Male

DRUGS (3)
  1. COAPROVEL TABS 300MG/12.5MG [Suspect]
     Indication: HYPERTENSION
     Route: 048
     Dates: start: 20040401, end: 20040821
  2. LASIX [Concomitant]
  3. NORVASC [Concomitant]

REACTIONS (1)
  - HEPATIC NEOPLASM MALIGNANT [None]
